FAERS Safety Report 6859117-4 (Version None)
Quarter: 2010Q3

REPORT INFORMATION
  Report Type: 
  Country: None (occurrence: None)
  Receive Date: 20100715
  Receipt Date: 20100702
  Transmission Date: 20110219
  Serious: Yes (Hospitalization)
  Sender: FDA-Public Use
  Company Number: A-US2007-14844

PATIENT
  Age: 75 Year
  Sex: Female

DRUGS (1)
  1. TRACLEER [Suspect]
     Indication: PULMONARY ARTERIAL HYPERTENSION
     Dosage: ORAL
     Route: 048
     Dates: start: 20050511

REACTIONS (5)
  - CARDIAC FAILURE [None]
  - CAROTID ARTERY OCCLUSION [None]
  - HYPOTENSION [None]
  - MYOCARDIAL INFARCTION [None]
  - WEIGHT DECREASED [None]
